FAERS Safety Report 4811185-7 (Version None)
Quarter: 2005Q4

REPORT INFORMATION
  Report Type: 
  Country: None (occurrence: None)
  Receive Date: 20051027
  Receipt Date: 20051013
  Transmission Date: 20060501
  Serious: Yes (Other)
  Sender: FDA-Public Use
  Company Number: SG-GLAXOSMITHKLINE-B0397976A

PATIENT
  Age: 24 Year
  Sex: Male

DRUGS (1)
  1. PANADOL ACTIFAST [Suspect]
     Indication: DRUG USE FOR UNKNOWN INDICATION
     Dosage: 500MG UNKNOWN
     Route: 048

REACTIONS (1)
  - RASH MACULO-PAPULAR [None]
